FAERS Safety Report 9700761 (Version 2)
Quarter: 2013Q4

REPORT INFORMATION
  Report Type: Spontaneous
  Country: ES (occurrence: None)
  Receive Date: 20131119
  Receipt Date: 20131125
  Transmission Date: 20140711
  Serious: Yes (Hospitalization)
  Sender: FDA-Public Use
  Company Number: AUR-APL-2013-09651

PATIENT
  Age: 53 Year
  Sex: Female

DRUGS (5)
  1. OLANZAPINE (OLANZAPINE) [Suspect]
     Indication: MAJOR DEPRESSION
  2. ENALAPRIL [Suspect]
     Indication: PRODUCT USED FOR UNKNOWN INDICATION
     Dosage: UNKNOWN
  3. CLORAZEPATE DIPOTASSIUM(CLORAZEPATE DIPOTASSIUM) [Concomitant]
  4. AGOMELATINE(AGOMELATINE) [Concomitant]
  5. HALOPERIDOL(HALOPERIDOL) [Concomitant]

REACTIONS (13)
  - Hyponatraemia [None]
  - Hyperkalaemia [None]
  - Psychomotor hyperactivity [None]
  - Dysthymic disorder [None]
  - Cognitive disorder [None]
  - Feeling of despair [None]
  - Anhedonia [None]
  - Decreased interest [None]
  - Decreased appetite [None]
  - Insomnia [None]
  - Depression [None]
  - Suicidal ideation [None]
  - Overdose [None]
